FAERS Safety Report 12096368 (Version 4)
Quarter: 2016Q3

REPORT INFORMATION
  Report Type: Report from Study
  Country: DE (occurrence: DE)
  Receive Date: 20160220
  Receipt Date: 20160915
  Transmission Date: 20161109
  Serious: Yes (Hospitalization)
  Sender: FDA-Public Use
  Company Number: DE-ASTRAZENECA-2016SE14260

PATIENT
  Age: 49 Year
  Sex: Male
  Weight: 94 kg

DRUGS (10)
  1. SEVREDOL [Concomitant]
     Active Substance: MORPHINE
     Dosage: 10.0MG AS REQUIRED
     Route: 048
     Dates: start: 20160122
  2. RANITIDIN [Concomitant]
     Active Substance: RANITIDINE HYDROCHLORIDE
     Dosage: 300.0MG ONCE/SINGLE ADMINISTRATION
     Route: 048
     Dates: start: 20160122
  3. TAGRISSO [Suspect]
     Active Substance: OSIMERTINIB
     Indication: NON-SMALL CELL LUNG CANCER METASTATIC
     Route: 048
     Dates: start: 20160212
  4. VOMEX A [Concomitant]
     Active Substance: DIMENHYDRINATE
     Dosage: 150.0MG AS REQUIRED
     Route: 048
     Dates: start: 20160122
  5. TAGRISSO [Suspect]
     Active Substance: OSIMERTINIB
     Indication: NON-SMALL CELL LUNG CANCER METASTATIC
     Route: 048
     Dates: start: 20160209, end: 20160211
  6. LYRICA [Concomitant]
     Active Substance: PREGABALIN
     Route: 048
     Dates: start: 20160122
  7. TAGRISSO [Suspect]
     Active Substance: OSIMERTINIB
     Indication: NON-SMALL CELL LUNG CANCER METASTATIC
     Route: 048
     Dates: start: 20160119, end: 20160208
  8. FRAGMIN P FORTE [Concomitant]
     Active Substance: DALTEPARIN SODIUM
     Dosage: 5000 IE QD
     Route: 058
     Dates: start: 20160105
  9. FENTANYL TRANSDERMAL SYSTEM [Concomitant]
     Active Substance: FENTANYL
     Dosage: 37.5 UG ONCE EVERY THEREE DAYS
     Route: 003
     Dates: start: 20160113
  10. NOVALGIN [Concomitant]
     Active Substance: METAMIZOLE SODIUM
     Route: 048
     Dates: start: 20160122

REACTIONS (2)
  - Gastritis erosive [Recovered/Resolved]
  - Vomiting [Recovered/Resolved]

NARRATIVE: CASE EVENT DATE: 20160206
